FAERS Safety Report 9525732 (Version 3)
Quarter: 2013Q4

REPORT INFORMATION
  Report Type: Spontaneous
  Country: US (occurrence: US)
  Receive Date: 20130915
  Receipt Date: 20131201
  Transmission Date: 20140711
  Serious: No
  Sender: FDA-Public Use
  Company Number: US-009507513-1309USA002343

PATIENT
  Sex: Female

DRUGS (6)
  1. PEGINTRON [Suspect]
     Indication: HEPATITIS C
     Dosage: KIT 120/0.5 UNITS, 120MCG/0.5ML, QW
     Route: 058
     Dates: start: 20130701
  2. REBETOL [Suspect]
     Route: 048
  3. ZOLOFT [Concomitant]
  4. ATIVAN [Concomitant]
  5. NAPROXEN [Concomitant]
  6. PROAMATINE [Concomitant]

REACTIONS (23)
  - Change of bowel habit [Not Recovered/Not Resolved]
  - Increased tendency to bruise [Not Recovered/Not Resolved]
  - Muscle disorder [Not Recovered/Not Resolved]
  - Arthropathy [Not Recovered/Not Resolved]
  - Arthropathy [Not Recovered/Not Resolved]
  - Scar [Unknown]
  - Scab [Unknown]
  - Tooth disorder [Not Recovered/Not Resolved]
  - Joint instability [Not Recovered/Not Resolved]
  - Infection [Not Recovered/Not Resolved]
  - Musculoskeletal disorder [Not Recovered/Not Resolved]
  - Dry mouth [Not Recovered/Not Resolved]
  - Dysgeusia [Not Recovered/Not Resolved]
  - Visual impairment [Not Recovered/Not Resolved]
  - Influenza like illness [Not Recovered/Not Resolved]
  - Cough [Recovering/Resolving]
  - Headache [Not Recovered/Not Resolved]
  - Rash [Not Recovered/Not Resolved]
  - Pruritus [Not Recovered/Not Resolved]
  - Vomiting [Recovering/Resolving]
  - Injection site rash [Recovering/Resolving]
  - Alopecia [Not Recovered/Not Resolved]
  - Weight decreased [Not Recovered/Not Resolved]
